FAERS Safety Report 15614213 (Version 2)
Quarter: 2018Q4

REPORT INFORMATION
  Report Type: Spontaneous
  Country: US (occurrence: US)
  Receive Date: 20181113
  Receipt Date: 20181218
  Transmission Date: 20190205
  Serious: No
  Sender: FDA-Public Use
  Company Number: US-PFIZER INC-2018463025

PATIENT
  Age: 71 Year
  Sex: Female

DRUGS (2)
  1. LATANOPROST. [Suspect]
     Active Substance: LATANOPROST
     Indication: GLAUCOMA
     Dosage: 2 GTT, DAILY (1 DROP NIGHTLY IN BOTH EYES)
     Route: 047
     Dates: start: 201409, end: 20181106
  2. LATANOPROST. [Suspect]
     Active Substance: LATANOPROST
     Dosage: 2 GTT, 1X/DAY (EVERY NIGHT AT BEDTIME)
     Route: 047
     Dates: start: 2017

REACTIONS (3)
  - Eye pain [Unknown]
  - Ocular hyperaemia [Recovered/Resolved]
  - Eye oedema [Recovered/Resolved]

NARRATIVE: CASE EVENT DATE: 2018
